FAERS Safety Report 6248513-4 (Version None)
Quarter: 2009Q2

REPORT INFORMATION
  Report Type: 
  Country: None (occurrence: None)
  Receive Date: 20090629
  Receipt Date: 20090624
  Transmission Date: 20091009
  Serious: Yes (Life-Threatening)
  Sender: FDA-Public Use
  Company Number: AU-ASTRAZENECA-2009SE03206

PATIENT
  Age: 75 Year
  Sex: Female

DRUGS (4)
  1. PRILOSEC [Suspect]
  2. EXJADE [Concomitant]
  3. LOMOTIL [Concomitant]
  4. PENICILLIN [Concomitant]

REACTIONS (3)
  - PSEUDOHYPERKALAEMIA [None]
  - PULMONARY EMBOLISM [None]
  - THROMBOCYTHAEMIA [None]
